FAERS Safety Report 6583517-3 (Version None)
Quarter: 2010Q1

REPORT INFORMATION
  Report Type: 
  Country: None (occurrence: None)
  Receive Date: 20100216
  Receipt Date: 20100203
  Transmission Date: 20100710
  Serious: Yes (Hospitalization, Other)
  Sender: FDA-Public Use
  Company Number: PHEH2006US11384

PATIENT
  Sex: Male

DRUGS (27)
  1. AREDIA [Suspect]
     Indication: LUNG NEOPLASM MALIGNANT
     Dosage: PER 30 MG/ 3 UNITS
     Dates: start: 20010701
  2. ZOMETA [Suspect]
     Indication: METASTASES TO BONE
     Dosage: 4 MG, UNK
  3. GLUCOPHAGE [Concomitant]
  4. GLUCOTROL [Concomitant]
  5. LIPITOR [Concomitant]
     Dosage: 20 / DAILY
  6. ANTINEOPLASTIC AGENTS [Concomitant]
     Dosage: UNK
     Dates: start: 20040101
  7. RADIATION THERAPY [Concomitant]
     Dosage: UNK
     Dates: start: 20040101
  8. CARBOPLATIN [Concomitant]
     Dosage: 50 MG, 13 UNITS
     Route: 042
  9. NORMAL SALINE [Concomitant]
     Dosage: 250 ML, UNK
     Route: 042
  10. CIMETIDINE [Concomitant]
     Dosage: 300 MG, UNK
     Route: 042
  11. DIPHENHYDRAMINE [Concomitant]
     Dosage: UP TO 50 MG
     Route: 042
  12. PACLITAXEL [Concomitant]
     Dosage: 30 MG, 12 UNITS
  13. DEXAMETHASONE [Concomitant]
     Dosage: 4 MG, 5 UNITS
     Route: 048
  14. GRANISETRON HYDROCHLORIDE [Concomitant]
     Dosage: 1 MG, 2 UNITS
  15. PEGFILGRASTIM [Concomitant]
  16. TAXOL [Concomitant]
     Dosage: UNK
     Dates: start: 20010701, end: 20010901
  17. ZOCOR [Concomitant]
  18. METFORMIN HCL [Concomitant]
     Dosage: UNK
  19. GLIPIZIDE [Concomitant]
     Dosage: 10 / DAILY
  20. TRI-CHLOR [Concomitant]
     Dosage: UNK
  21. NEXIUM [Concomitant]
     Dosage: UNK
  22. LISINOPRIL [Concomitant]
     Dosage: 5 / DAILY
  23. ASPIRIN [Concomitant]
     Dosage: 160 / DAILY
  24. M.V.I. [Concomitant]
     Dosage: UNK
  25. ADVIL [Concomitant]
     Dosage: UNK, PRN-ABOUT EVERY OTHER DAY
  26. PERCOCET [Concomitant]
  27. NEULASTA [Concomitant]

REACTIONS (54)
  - ANAEMIA [None]
  - ANXIETY [None]
  - AREFLEXIA [None]
  - ARTHRALGIA [None]
  - AZOTAEMIA [None]
  - BONE DEBRIDEMENT [None]
  - BONE FRAGMENTATION [None]
  - BONE LESION [None]
  - BONE NEOPLASM MALIGNANT [None]
  - BONE OPERATION [None]
  - CENTRAL VENOUS CATHETERISATION [None]
  - DEBRIDEMENT [None]
  - DECREASED APPETITE [None]
  - DECREASED INTEREST [None]
  - DEFORMITY [None]
  - DENTAL FISTULA [None]
  - DIABETES MELLITUS INADEQUATE CONTROL [None]
  - EMOTIONAL DISTRESS [None]
  - ERYTHEMA [None]
  - ESCHAR [None]
  - FATIGUE [None]
  - GENERAL PHYSICAL HEALTH DETERIORATION [None]
  - HYPERKERATOSIS [None]
  - HYPOAESTHESIA [None]
  - HYPOPHAGIA [None]
  - INJURY [None]
  - JAW OPERATION [None]
  - KNEE OPERATION [None]
  - LACRIMATION INCREASED [None]
  - LIFE EXPECTANCY SHORTENED [None]
  - LOCALISED INFECTION [None]
  - LOOSE TOOTH [None]
  - METASTATIC NEOPLASM [None]
  - MUCOSAL INFLAMMATION [None]
  - NAIL HYPERTROPHY [None]
  - NEOPLASM [None]
  - NEUROPATHY PERIPHERAL [None]
  - OEDEMA [None]
  - OSTEONECROSIS [None]
  - PAIN [None]
  - PAIN IN EXTREMITY [None]
  - PARAESTHESIA ORAL [None]
  - PARONYCHIA [None]
  - PERIPHERAL VASCULAR DISORDER [None]
  - RASH PAPULAR [None]
  - RECURRENT CANCER [None]
  - SEQUESTRECTOMY [None]
  - SKIN ATROPHY [None]
  - SKIN DISCOLOURATION [None]
  - SKIN DISORDER [None]
  - SKIN ULCER [None]
  - SURGERY [None]
  - TOOTH INFECTION [None]
  - TOOTH LOSS [None]
